FAERS Safety Report 19082827 (Version 2)
Quarter: 2021Q2

REPORT INFORMATION
  Report Type: Spontaneous
  Country: US (occurrence: US)
  Receive Date: 20210401
  Receipt Date: 20210405
  Transmission Date: 20210717
  Serious: Yes (Hospitalization, Other)
  Sender: FDA-Public Use
  Company Number: US-SA-2021SA105005

PATIENT
  Age: 91 Year
  Sex: Female

DRUGS (2)
  1. RASBURICASE [Suspect]
     Active Substance: RASBURICASE
     Indication: PROPHYLAXIS
     Dosage: 7.5 MG, 1X, TRANSFUSION
  2. RASBURICASE [Suspect]
     Active Substance: RASBURICASE
     Indication: TUMOUR LYSIS SYNDROME

REACTIONS (11)
  - Renal tubular necrosis [Unknown]
  - Apnoea [Recovered/Resolved]
  - Haemolysis [Recovering/Resolving]
  - Respiratory failure [Recovered/Resolved]
  - Hyperkalaemia [Unknown]
  - Haemolytic anaemia [Recovering/Resolving]
  - Acute kidney injury [Unknown]
  - Methaemoglobinaemia [Recovering/Resolving]
  - Hypoxia [Recovering/Resolving]
  - Dyspnoea [Recovering/Resolving]
  - Haemoglobinuria [Unknown]
